FAERS Safety Report 12916344 (Version 1)
Quarter: 2016Q4

REPORT INFORMATION
  Report Type: Spontaneous
  Country: US (occurrence: US)
  Receive Date: 20161107
  Receipt Date: 20161107
  Transmission Date: 20170207
  Serious: No
  Sender: FDA-Public Use
  Company Number: US-009507513-1610USA011765

PATIENT
  Age: 26 Year
  Sex: Female
  Weight: 80.27 kg

DRUGS (1)
  1. IMPLANON [Suspect]
     Active Substance: ETONOGESTREL
     Indication: CONTRACEPTION
     Dosage: 3 YEAR IMPLANT, IN THE LEFT ARM
     Route: 059

REACTIONS (5)
  - Menorrhagia [Unknown]
  - Weight increased [Unknown]
  - Menstruation irregular [Unknown]
  - Incorrect drug administration duration [Unknown]
  - Headache [Unknown]

NARRATIVE: CASE EVENT DATE: 20160929
